FAERS Safety Report 6449032-2 (Version None)
Quarter: 2009Q4

REPORT INFORMATION
  Report Type: 
  Country: None (occurrence: None)
  Receive Date: 20091120
  Receipt Date: 20091117
  Transmission Date: 20100525
  Serious: Yes (Life-Threatening, Hospitalization)
  Sender: FDA-Public Use
  Company Number: B0605009A

PATIENT
  Sex: Female

DRUGS (7)
  1. AUGMENTIN [Suspect]
     Indication: COUGH
     Dosage: 1G TWICE PER DAY
     Route: 048
     Dates: start: 20090201, end: 20090201
  2. CORDARONE [Suspect]
     Indication: DRUG USE FOR UNKNOWN INDICATION
     Dosage: 200MG PER DAY
     Route: 048
     Dates: end: 20090223
  3. PREVISCAN [Suspect]
     Indication: DRUG USE FOR UNKNOWN INDICATION
     Dosage: 20MG PER DAY
     Route: 048
  4. TAVANIC [Concomitant]
     Dosage: 2UNIT PER DAY
     Route: 048
     Dates: start: 20090201, end: 20090303
  5. BACTRIM [Concomitant]
     Dosage: 1UNIT TWICE PER DAY
     Route: 048
     Dates: start: 20090303, end: 20090313
  6. HEMIGOXINE NATIVELLE [Concomitant]
     Indication: DRUG USE FOR UNKNOWN INDICATION
     Dosage: .125MG PER DAY
     Route: 048
     Dates: start: 20090228
  7. CARBOCYSTEINE [Concomitant]
     Indication: COUGH
     Route: 065
     Dates: start: 20090201

REACTIONS (3)
  - DRUG INTERACTION [None]
  - INTERNATIONAL NORMALISED RATIO INCREASED [None]
  - OVERDOSE [None]
